FAERS Safety Report 9198058 (Version 1)
Quarter: 2013Q1

REPORT INFORMATION
  Report Type: Spontaneous
  Country: US (occurrence: US)
  Receive Date: 20130328
  Receipt Date: 20130328
  Transmission Date: 20140127
  Serious: Yes (Hospitalization)
  Sender: FDA-Public Use
  Company Number: US-B.I. PHARMACEUTICALS,INC./RIDGEFIELD-2013-BI-08052BP

PATIENT
  Sex: Male
  Weight: 81 kg

DRUGS (3)
  1. ATROVENT [Suspect]
     Indication: BRONCHOSPASM
     Dosage: 17 MCG
     Route: 055
     Dates: end: 2011
  2. SPIRIVA [Suspect]
     Indication: LUNG DISORDER
     Dosage: 18 MCG
     Route: 055
     Dates: start: 2011
  3. FLOVENT [Concomitant]

REACTIONS (4)
  - Asthenia [Recovered/Resolved]
  - Sepsis [Recovered/Resolved]
  - Polyp [Recovered/Resolved]
  - Visual impairment [Not Recovered/Not Resolved]
